FAERS Safety Report 13975958 (Version 1)
Quarter: 2017Q3

REPORT INFORMATION
  Report Type: Spontaneous
  Country: IN (occurrence: IN)
  Receive Date: 20170915
  Receipt Date: 20170915
  Transmission Date: 20171128
  Serious: Yes (Other)
  Sender: FDA-Public Use
  Company Number: IN-BAUSCH-BL-2017-027031

PATIENT
  Age: 55 Year
  Sex: Male

DRUGS (1)
  1. LORAZEPAM. [Suspect]
     Active Substance: LORAZEPAM
     Indication: ALCOHOLISM
     Route: 042

REACTIONS (1)
  - Delirium tremens [Recovered/Resolved]
